FAERS Safety Report 16815017 (Version 1)
Quarter: 2019Q4

REPORT INFORMATION
  Report Type: Spontaneous
  Country: US (occurrence: US)
  Receive Date: 20190916
  Receipt Date: 20190916
  Transmission Date: 20200122
  Serious: Yes (Other)
  Sender: FDA-Public Use
  Company Number: None

PATIENT
  Age: 61 Year
  Sex: Female
  Weight: 53.55 kg

DRUGS (1)
  1. VISINE A.C. ITCHY EYE RELIEF [Suspect]
     Active Substance: TETRAHYDROZOLINE HYDROCHLORIDE\ZINC SULFATE
     Indication: EYE PRURITUS
     Dosage: ?          QUANTITY:15 DROP(S);?

REACTIONS (1)
  - Eye irritation [None]

NARRATIVE: CASE EVENT DATE: 20190914
